FAERS Safety Report 5510089-4 (Version None)
Quarter: 2007Q4

REPORT INFORMATION
  Report Type: 
  Country: None (occurrence: None)
  Receive Date: 20071108
  Receipt Date: 20070806
  Transmission Date: 20080405
  Serious: No
  Sender: FDA-Public Use
  Company Number: US-ABBOTT-07P-163-0377100-00

PATIENT
  Sex: Male
  Weight: 97.3 kg

DRUGS (1)
  1. TARKA [Suspect]
     Indication: CORONARY ARTERY DISEASE
     Route: 048
     Dates: start: 20060601, end: 20070501

REACTIONS (1)
  - CONSTIPATION [None]
